FAERS Safety Report 6150229-X (Version None)
Quarter: 2009Q2

REPORT INFORMATION
  Report Type: 
  Country: None (occurrence: None)
  Receive Date: 20090407
  Receipt Date: 20090407
  Transmission Date: 20091009
  Serious: No
  Sender: FDA-Public Use
  Company Number: None

PATIENT
  Age: 64 Year
  Sex: Female
  Weight: 70.7611 kg

DRUGS (3)
  1. LIDODERM [Suspect]
     Indication: NERVE INJURY
     Dosage: PRN (1X 1 WEEK) PATCH
     Dates: start: 20090220
  2. LIDODERM [Suspect]
     Indication: NERVE INJURY
     Dosage: PRN (1X 1 WEEK) PATCH
     Dates: start: 20090228
  3. LIDODERM [Suspect]

REACTIONS (4)
  - ARTHRALGIA [None]
  - INSOMNIA [None]
  - PAIN IN EXTREMITY [None]
  - PERIPHERAL COLDNESS [None]
